FAERS Safety Report 26065375 (Version 3)
Quarter: 2025Q4

REPORT INFORMATION
  Report Type: Spontaneous
  Country: US (occurrence: US)
  Receive Date: 20251119
  Receipt Date: 20251230
  Transmission Date: 20260117
  Serious: Yes (Hospitalization)
  Sender: LIQUIDIA TECHNOLOGIES
  Company Number: US-LIQUIDIA TECHNOLOGIES, INC.-LIQ-2025-000253

PATIENT

DRUGS (26)
  1. YUTREPIA [Suspect]
     Active Substance: TREPROSTINIL SODIUM
     Indication: Pulmonary arterial hypertension
     Dosage: 26.5 MICROGRAM, QID (INHALE 2 BREATHS PER CAPSULE )
     Route: 055
     Dates: start: 2025, end: 202508
  2. YUTREPIA [Suspect]
     Active Substance: TREPROSTINIL SODIUM
     Indication: Pulmonary arterial hypertension
     Dosage: 53 MICROGRAM, QID (INHALE 2 BREATHS PER CAPSULE)
     Route: 055
     Dates: start: 202508, end: 202508
  3. YUTREPIA [Suspect]
     Active Substance: TREPROSTINIL SODIUM
     Indication: Pulmonary arterial hypertension
     Dosage: 53 MICROGRAM, QID (INHALE 2 BREATHS PER CAPSULE 4 TIMES A DAY)
     Route: 055
     Dates: start: 2025
  4. YUTREPIA [Suspect]
     Active Substance: TREPROSTINIL SODIUM
     Indication: Pulmonary hypertension
     Dosage: 53 MICROGRAM, QID , INHALE 2 BREATHES PER CAPSULE
     Route: 055
     Dates: start: 2025
  5. YUTREPIA [Suspect]
     Active Substance: TREPROSTINIL SODIUM
     Dosage: 53 MICROGRAM, QID (INHALE 2 BREATHS PER CAPSULE)
     Route: 055
     Dates: start: 2025
  6. YUTREPIA [Suspect]
     Active Substance: TREPROSTINIL SODIUM
     Indication: Pulmonary arterial hypertension
     Dosage: 79.5 MICROGRAM, QID, INHALE 2 BREATHES PER CAPSULE
     Route: 055
     Dates: start: 202508, end: 2025
  7. PREDNISONE [Concomitant]
     Active Substance: PREDNISONE
     Indication: Product used for unknown indication
     Dosage: UNK
     Route: 065
  8. ALBUTEROL SULFATE [Concomitant]
     Active Substance: ALBUTEROL SULFATE
     Indication: Product used for unknown indication
     Dosage: UNK
     Route: 065
  9. CYCLOBENZAPRINE HYDROCHLORIDE [Concomitant]
     Active Substance: CYCLOBENZAPRINE HYDROCHLORIDE
     Indication: Product used for unknown indication
     Dosage: UNK
     Route: 065
  10. TRELEGY ELLIPTA [Concomitant]
     Active Substance: FLUTICASONE FUROATE\UMECLIDINIUM BROMIDE\VILANTEROL TRIFENATATE
     Indication: Product used for unknown indication
     Dosage: UNK
     Route: 065
  11. BACLOFEN [Concomitant]
     Active Substance: BACLOFEN
     Indication: Product used for unknown indication
     Dosage: UNK
     Route: 065
  12. FOLIC ACID [Concomitant]
     Active Substance: FOLIC ACID
     Indication: Product used for unknown indication
     Dosage: UNK
     Route: 065
  13. OXYGEN [Concomitant]
     Active Substance: OXYGEN
     Indication: Product used for unknown indication
     Dosage: UNK
     Route: 055
  14. DEXTROMETHORPHAN\GUAIFENESIN [Concomitant]
     Active Substance: DEXTROMETHORPHAN\GUAIFENESIN
     Indication: Product used for unknown indication
     Dosage: UNK
     Route: 065
  15. ELIQUIS [Concomitant]
     Active Substance: APIXABAN
     Indication: Product used for unknown indication
     Dosage: UNK
     Route: 065
  16. MYCOPHENOLATE MOFETIL [Concomitant]
     Active Substance: MYCOPHENOLATE MOFETIL
     Indication: Product used for unknown indication
     Dosage: UNK
     Route: 065
  17. FUROSEMIDE [Concomitant]
     Active Substance: FUROSEMIDE
     Indication: Product used for unknown indication
     Dosage: UNK
     Route: 065
  18. NEXIUM I.V. [Concomitant]
     Active Substance: ESOMEPRAZOLE SODIUM
     Indication: Product used for unknown indication
     Dosage: UNK
     Route: 065
  19. DULOXETINE HYDROCHLORIDE [Concomitant]
     Active Substance: DULOXETINE HYDROCHLORIDE
     Indication: Product used for unknown indication
     Dosage: UNK
     Route: 065
  20. ASPIRIN [Concomitant]
     Active Substance: ASPIRIN
     Indication: Product used for unknown indication
     Dosage: UNK (LOW DOSE)
     Route: 065
  21. GABAPENTIN [Concomitant]
     Active Substance: GABAPENTIN
     Indication: Product used for unknown indication
     Dosage: UNK
     Route: 065
  22. ROSUVASTATIN CALCIUM [Concomitant]
     Active Substance: ROSUVASTATIN CALCIUM
     Indication: Product used for unknown indication
     Dosage: UNK
     Route: 065
  23. ACYCLOVIR [Concomitant]
     Active Substance: ACYCLOVIR
     Indication: Product used for unknown indication
     Dosage: UNK
     Route: 065
  24. MAGNESIUM [Concomitant]
     Active Substance: MAGNESIUM
     Indication: Product used for unknown indication
     Dosage: UNK
     Route: 065
  25. METOPROLOL SUCCINATE [Concomitant]
     Active Substance: METOPROLOL SUCCINATE
     Indication: Product used for unknown indication
     Dosage: UNK
     Route: 065
  26. HYDROCORTISONE [Concomitant]
     Active Substance: HYDROCORTISONE
     Indication: Product used for unknown indication
     Dosage: UNK
     Route: 065

REACTIONS (12)
  - Fall [Unknown]
  - Limb injury [Unknown]
  - Hypersomnia [Unknown]
  - Fatigue [Unknown]
  - Illness [Unknown]
  - Malaise [Unknown]
  - Dizziness [Not Recovered/Not Resolved]
  - Headache [Unknown]
  - Cough [Recovered/Resolved]
  - Heart rate abnormal [Unknown]
  - Headache [Unknown]
  - Dizziness [Unknown]

NARRATIVE: CASE EVENT DATE: 20250101
